FAERS Safety Report 10415008 (Version 1)
Quarter: 2014Q2

REPORT INFORMATION
  Report Type: Spontaneous
  Country: US (occurrence: None)
  Receive Date: 20140604
  Receipt Date: 20140604
  Transmission Date: 20141212
  Serious: No
  Sender: FDA-Public Use
  Company Number: 163-POMAL-14030589

PATIENT
  Age: 76 Year
  Sex: Male
  Weight: 92.31 kg

DRUGS (3)
  1. POMALYST (POMALIDOMIDE) (4 MILLIGRAM, CAPSULES) [Suspect]
     Indication: PLASMA CELL MYELOMA
     Route: 048
     Dates: start: 201305, end: 2013
  2. DECADRON (DEXAMETHASONE) [Concomitant]
  3. CYTOXAN (CYCLOPHOSPHAMIDE) [Concomitant]

REACTIONS (1)
  - Toxicity to various agents [None]
